FAERS Safety Report 7491028-6 (Version None)
Quarter: 2011Q2

REPORT INFORMATION
  Report Type: 
  Country: None (occurrence: None)
  Receive Date: 20110519
  Receipt Date: 20110516
  Transmission Date: 20111010
  Serious: No
  Sender: FDA-Public Use
  Company Number: US-PFIZER INC-2011095894

PATIENT
  Sex: Male

DRUGS (1)
  1. MENINGOCOCCAL VACCINE [Suspect]
     Dosage: UNK
     Dates: start: 20110412

REACTIONS (1)
  - DRUG HYPERSENSITIVITY [None]
